FAERS Safety Report 26173008 (Version 1)
Quarter: 2025Q4

REPORT INFORMATION
  Report Type: Spontaneous
  Country: GB (occurrence: GB)
  Receive Date: 20251218
  Receipt Date: 20251218
  Transmission Date: 20260118
  Serious: Yes (Hospitalization, Other)
  Sender: AMGEN
  Company Number: GB-AMGEN-GBRSP2025243258

PATIENT
  Age: 56 Year
  Sex: Male

DRUGS (4)
  1. ADALIMUMAB [Suspect]
     Active Substance: ADALIMUMAB
     Indication: Psoriatic arthropathy
     Dosage: UNK
     Route: 065
     Dates: start: 201912, end: 202212
  2. ADALIMUMAB [Suspect]
     Active Substance: ADALIMUMAB
     Indication: Spondyloarthropathy
  3. IBUPROFEN [Concomitant]
     Active Substance: IBUPROFEN
  4. ACITRETIN [Concomitant]
     Active Substance: ACITRETIN

REACTIONS (3)
  - Psoriatic arthropathy [Recovering/Resolving]
  - Paradoxical drug reaction [Recovering/Resolving]
  - Cutaneous tuberculosis [Recovering/Resolving]
